FAERS Safety Report 20439264 (Version 1)
Quarter: 2022Q1

REPORT INFORMATION
  Report Type: Spontaneous
  Country: US (occurrence: None)
  Receive Date: 20220204
  Receipt Date: 20220204
  Transmission Date: 20220423
  Serious: No
  Sender: FDA-Public Use
  Company Number: None

PATIENT
  Sex: Female

DRUGS (1)
  1. SUNITINIB MALATE [Suspect]
     Active Substance: SUNITINIB MALATE
     Indication: Neuroendocrine tumour
     Dosage: FREQUENCY : DAILY;?
     Route: 048

REACTIONS (5)
  - Platelet count decreased [None]
  - Gastrooesophageal reflux disease [None]
  - Urinary tract infection [None]
  - Blood pressure systolic increased [None]
  - Therapy interrupted [None]
